FAERS Safety Report 16630812 (Version 2)
Quarter: 2019Q3

REPORT INFORMATION
  Report Type: Report from Study
  Country: US (occurrence: US)
  Receive Date: 20190725
  Receipt Date: 20190910
  Transmission Date: 20191004
  Serious: Yes (Hospitalization, Other)
  Sender: FDA-Public Use
  Company Number: US-BRISTOL-MYERS SQUIBB COMPANY-BMS-2019-072706

PATIENT
  Age: 81 Year
  Sex: Male
  Weight: 80.2 kg

DRUGS (2)
  1. IPILIMUMAB [Suspect]
     Active Substance: IPILIMUMAB
     Indication: MALIGNANT MELANOMA
     Dosage: 3 MILLIGRAM/KILOGRAM OVER 90 MINUTES ON DAY 1
     Route: 042
     Dates: start: 20190619, end: 20190703
  2. NIVOLUMAB [Suspect]
     Active Substance: NIVOLUMAB
     Indication: MALIGNANT MELANOMA
     Dosage: 1 MILLILITRE PER KILOGRAM, OVER 60 MINUTES ON DAY 1
     Route: 042
     Dates: start: 20190619, end: 20190703

REACTIONS (5)
  - Odynophagia [Recovering/Resolving]
  - Enterocolitis [Recovering/Resolving]
  - Dysphagia [Recovering/Resolving]
  - Oral candidiasis [Recovered/Resolved]
  - Autoimmune hepatitis [Recovering/Resolving]

NARRATIVE: CASE EVENT DATE: 20190703
